FAERS Safety Report 13288987 (Version 1)
Quarter: 2017Q1

REPORT INFORMATION
  Report Type: Spontaneous
  Country: NZ (occurrence: NZ)
  Receive Date: 20170302
  Receipt Date: 20170302
  Transmission Date: 20170428
  Serious: Yes (Hospitalization, Other)
  Sender: FDA-Public Use
  Company Number: NZ-STRIDES ARCOLAB LIMITED-2017SP003433

PATIENT

DRUGS (5)
  1. LEVOFLOXACIN. [Concomitant]
     Active Substance: LEVOFLOXACIN
     Indication: PNEUMONIA STAPHYLOCOCCAL
     Dosage: UNK, UNKNOWN
     Route: 065
  2. ANTIBIOTICS [Concomitant]
     Active Substance: UNSPECIFIED INGREDIENT
     Indication: INFLUENZA LIKE ILLNESS
     Dosage: UNK, UNKNOWN
     Route: 065
  3. CEFEPIME [Concomitant]
     Active Substance: CEFEPIME HYDROCHLORIDE
     Indication: PNEUMONIA STAPHYLOCOCCAL
     Dosage: UNK, UNKNOWN
     Route: 065
  4. VANCOMYCIN [Suspect]
     Active Substance: VANCOMYCIN
     Indication: PNEUMONIA STAPHYLOCOCCAL
     Dosage: UNK, UNKNOWN
     Route: 065
  5. OSELTAMIVIR [Concomitant]
     Active Substance: OSELTAMIVIR
     Indication: H1N1 INFLUENZA
     Dosage: UNK, UNKNOWN
     Route: 065

REACTIONS (5)
  - Drug ineffective [Unknown]
  - Obstructive airways disorder [Unknown]
  - Tracheobronchitis [Unknown]
  - Mucosal haemorrhage [Unknown]
  - Leukocytosis [Unknown]
